FAERS Safety Report 12130124 (Version 1)
Quarter: 2016Q1

REPORT INFORMATION
  Report Type: Spontaneous
  Country: US (occurrence: US)
  Receive Date: 20160229
  Receipt Date: 20160229
  Transmission Date: 20160526
  Serious: No
  Sender: FDA-Public Use
  Company Number: US-ACORDA-ACO_25456_2010

PATIENT
  Age: 62 Year
  Sex: Female

DRUGS (3)
  1. PREDNISONE. [Concomitant]
     Active Substance: PREDNISONE
     Dosage: DF
  2. AMPYRA [Suspect]
     Active Substance: DALFAMPRIDINE
     Indication: MULTIPLE SCLEROSIS
     Dosage: 10 MG, BID
     Route: 048
     Dates: start: 20101001, end: 20101011
  3. URSODIOL. [Concomitant]
     Active Substance: URSODIOL
     Dosage: DF

REACTIONS (5)
  - Dyspepsia [Unknown]
  - Urinary tract infection [Not Recovered/Not Resolved]
  - Lethargy [Unknown]
  - Dizziness [Unknown]
  - Back pain [Unknown]

NARRATIVE: CASE EVENT DATE: 20101008
